FAERS Safety Report 9665916 (Version 2)
Quarter: 2013Q4

REPORT INFORMATION
  Report Type: Spontaneous
  Country: JP (occurrence: JP)
  Receive Date: 20131104
  Receipt Date: 20131114
  Transmission Date: 20140711
  Serious: Yes (Disabling)
  Sender: FDA-Public Use
  Company Number: JP-SUCAMPO PHARMA AMERICAS, INC-SPI201300753

PATIENT
  Sex: Female

DRUGS (5)
  1. RESCULA [Suspect]
  2. TAPROS [Concomitant]
     Route: 047
  3. SANPILO [Concomitant]
     Route: 047
  4. UNSPECIFIED EYE DROP [Concomitant]
     Route: 047
  5. UNSPECIFIED EYE DROP [Concomitant]
     Route: 047

REACTIONS (1)
  - Blindness unilateral [Unknown]
